FAERS Safety Report 7123129-6 (Version None)
Quarter: 2010Q4

REPORT INFORMATION
  Report Type: 
  Country: None (occurrence: None)
  Receive Date: 20101125
  Receipt Date: 20101115
  Transmission Date: 20110411
  Serious: Yes (Hospitalization)
  Sender: FDA-Public Use
  Company Number: 2005BI007010

PATIENT
  Age: 59 Year
  Sex: Female
  Weight: 54 kg

DRUGS (19)
  1. AVONEX [Suspect]
     Indication: MULTIPLE SCLEROSIS
     Route: 030
     Dates: start: 20000901, end: 20030801
  2. AVONEX [Suspect]
     Route: 030
     Dates: start: 20030801
  3. LASIX [Concomitant]
     Indication: FLUID RETENTION
     Dates: start: 19980101
  4. LEVOTHROID [Concomitant]
     Indication: HYPOTHYROIDISM
  5. LOTREL [Concomitant]
     Indication: BLOOD PRESSURE
     Dates: start: 20040101
  6. MOBIC [Concomitant]
     Indication: RHEUMATOID ARTHRITIS
     Dates: start: 20030101
  7. SINGULAIR [Concomitant]
     Indication: ASTHMA
  8. ALBUTEROL [Concomitant]
     Indication: ASTHMA
     Dates: start: 20000101
  9. COMBIVENT [Concomitant]
     Indication: ASTHMA
     Route: 055
     Dates: start: 20000101
  10. ISOSORBIDE DINITRATE [Concomitant]
     Indication: ANGINA PECTORIS
     Dates: start: 19990101
  11. ZANAFLEX [Concomitant]
     Indication: MUSCLE SPASMS
     Dates: start: 20010101
  12. BACLOFEN [Concomitant]
     Indication: MUSCLE SPASMS
     Dates: end: 20010101
  13. DUONEB [Concomitant]
     Indication: CHRONIC OBSTRUCTIVE PULMONARY DISEASE
  14. ADVAIR [Concomitant]
     Indication: ASTHMA
  15. ANALGESIC PATCH [Concomitant]
     Indication: PAIN
     Dates: end: 20000101
  16. HYDROCODONE [Concomitant]
     Indication: PAIN
     Dates: start: 20000101, end: 20030101
  17. DARVOCET [Concomitant]
     Indication: PAIN
     Dates: start: 20040101
  18. TYLENOL (CAPLET) [Concomitant]
     Indication: PAIN
  19. BREATHING TREATMENT (NOS) [Concomitant]
     Indication: ASTHMA
     Route: 055

REACTIONS (27)
  - APHASIA [None]
  - ASTHENIA [None]
  - CARDIAC DISORDER [None]
  - CHRONIC OBSTRUCTIVE PULMONARY DISEASE [None]
  - DEPRESSION [None]
  - DROOLING [None]
  - DRY EYE [None]
  - DYSPNOEA [None]
  - EMPHYSEMA [None]
  - FALL [None]
  - FATIGUE [None]
  - FEELING ABNORMAL [None]
  - GAIT DISTURBANCE [None]
  - GASTROOESOPHAGEAL REFLUX DISEASE [None]
  - HALLUCINATION [None]
  - HYPOTENSION [None]
  - MEMORY IMPAIRMENT [None]
  - MULTI-ORGAN FAILURE [None]
  - MULTIPLE SCLEROSIS [None]
  - MULTIPLE SCLEROSIS RELAPSE [None]
  - MUSCLE SPASMS [None]
  - MUSCLE SPASTICITY [None]
  - OSTEOPOROSIS [None]
  - SOMNOLENCE [None]
  - TRANSIENT ISCHAEMIC ATTACK [None]
  - TREMOR [None]
  - URINARY RETENTION [None]
